FAERS Safety Report 9162522 (Version 2)
Quarter: 2013Q1

REPORT INFORMATION
  Report Type: Spontaneous
  Country: US (occurrence: None)
  Receive Date: 20130215
  Receipt Date: 20130312
  Transmission Date: 20140127
  Serious: Yes (Other)
  Sender: FDA-Public Use
  Company Number: 2013034656

PATIENT
  Age: 56 Year
  Sex: Female

DRUGS (2)
  1. ZEMAIRA (ALPHA-1 PROTEINASE INHIBITOR (HUMAN)) [Suspect]
     Indication: ALPHA-1 ANTI-TRYPSIN DEFICIENCY
     Dates: start: 20130131
  2. ZEMAIRA (ALPHA-1 PROTEINASE INHIBITOR (HUMAN)) [Suspect]
     Dates: start: 20130131

REACTIONS (5)
  - Mass [None]
  - Nerve injury [None]
  - Tenderness [None]
  - Burning sensation [None]
  - Thrombosis [None]
